FAERS Safety Report 23644640 (Version 1)
Quarter: 2024Q1

REPORT INFORMATION
  Report Type: Spontaneous
  Country: US (occurrence: None)
  Receive Date: 20240318
  Receipt Date: 20240318
  Transmission Date: 20240409
  Serious: Yes (Hospitalization)
  Sender: FDA-Public Use
  Company Number: None

PATIENT
  Sex: Male

DRUGS (11)
  1. TACROLIMUS [Suspect]
     Active Substance: TACROLIMUS
     Indication: Acute lymphocytic leukaemia
     Dosage: FREQUENCY : AS DIRECTED;?
     Route: 048
     Dates: start: 20231227
  2. ACYCLOVIR [Concomitant]
     Active Substance: ACYCLOVIR
  3. ALLOPURINOL [Concomitant]
     Active Substance: ALLOPURINOL
  4. AZITHROMYCIN [Concomitant]
  5. BENZONATATE [Concomitant]
  6. HYDROCORT AC [Concomitant]
  7. HYDROCORTISO CRE [Concomitant]
  8. METHYLPREDNISOLONE [Concomitant]
     Active Substance: METHYLPREDNISOLONE
  9. MIRTAZAPINE [Concomitant]
  10. ONDANSETRON [Concomitant]
  11. PANTOPRAZOLE [Concomitant]

REACTIONS (2)
  - Pyrexia [None]
  - Therapy interrupted [None]
